FAERS Safety Report 8998460 (Version 1)
Quarter: 2013Q1

REPORT INFORMATION
  Report Type: Spontaneous
  Country: US (occurrence: US)
  Receive Date: 20130103
  Receipt Date: 20130103
  Transmission Date: 20140127
  Serious: Yes (Life-Threatening, Other)
  Sender: FDA-Public Use
  Company Number: US-ROCHE-1156188

PATIENT
  Age: 70 Year
  Sex: Female

DRUGS (9)
  1. XOLAIR [Suspect]
     Indication: ASTHMA
     Route: 058
     Dates: start: 20070524, end: 20121211
  2. NEXIUM [Concomitant]
     Indication: GASTROOESOPHAGEAL REFLUX DISEASE
     Route: 048
     Dates: start: 2008
  3. GLUCOPHAGE [Concomitant]
     Route: 048
  4. GLUCOPHAGE [Concomitant]
     Route: 048
  5. VALSARTAN [Concomitant]
     Indication: HYPERTENSION
     Dosage: 160/2.5 MG
     Route: 048
     Dates: start: 2008
  6. ALBUTEROL NEBULIZER [Concomitant]
  7. ATROVENT [Concomitant]
  8. BENZONATATE [Concomitant]
     Route: 065
  9. GLIMEPIRIDE [Concomitant]
     Route: 065

REACTIONS (2)
  - Lung neoplasm malignant [Unknown]
  - Lung adenocarcinoma [Not Recovered/Not Resolved]
